FAERS Safety Report 21444870 (Version 2)
Quarter: 2022Q4

REPORT INFORMATION
  Report Type: Spontaneous
  Country: IQ (occurrence: IQ)
  Receive Date: 20221012
  Receipt Date: 20221021
  Transmission Date: 20230112
  Serious: Yes (Other)
  Sender: FDA-Public Use
  Company Number: IQ-MLMSERVICE-20221003-3771575-2

PATIENT
  Age: 6 Year
  Sex: Female

DRUGS (1)
  1. TRIAMCINOLONE ACETONIDE [Suspect]
     Active Substance: TRIAMCINOLONE ACETONIDE
     Indication: Skin disorder
     Dosage: UNK
     Route: 030

REACTIONS (2)
  - Injection site atrophy [Unknown]
  - Skin hypopigmentation [Unknown]
